FAERS Safety Report 4417043-4 (Version None)
Quarter: 2004Q2

REPORT INFORMATION
  Report Type: 
  Country: None (occurrence: None)
  Receive Date: 20040629
  Receipt Date: 20031223
  Transmission Date: 20050107
  Serious: No
  Sender: FDA-Public Use
  Company Number: US061748

PATIENT
  Age: 77 Year
  Sex: Male
  Weight: 82.4 kg

DRUGS (8)
  1. ARANESP [Suspect]
     Indication: RENAL FAILURE CHRONIC
     Dosage: 60 MCG, EVERY 2 WEEKS
     Dates: start: 20031031
  2. CYANOCOBALAMIN [Concomitant]
  3. SALMETEROL HYDROXYNAPHTHOATE [Concomitant]
  4. PAROXETINE HYDROCHLORIDE [Concomitant]
  5. CANDESARTAN CILEXETIL [Concomitant]
  6. AMLODIPINE BESYLATE [Concomitant]
  7. FLUTICASONE PROPIONATE [Concomitant]
  8. MOMETASONE FUROATE MONOHYDRATE [Concomitant]

REACTIONS (1)
  - HAEMOGLOBIN DECREASED [None]
